FAERS Safety Report 9229873 (Version 1)
Quarter: 2013Q2

REPORT INFORMATION
  Report Type: Spontaneous
  Country: US (occurrence: None)
  Receive Date: 20130412
  Receipt Date: 20130412
  Transmission Date: 20140414
  Serious: No
  Sender: FDA-Public Use
  Company Number: None

PATIENT
  Age: 54 Year
  Sex: Female
  Weight: 56.7 kg

DRUGS (1)
  1. ESTRACE [Suspect]
     Indication: VULVOVAGINAL DRYNESS
     Dates: start: 20130315, end: 20130321

REACTIONS (4)
  - Abdominal pain [None]
  - Nausea [None]
  - Abdominal pain upper [None]
  - Blood triglycerides increased [None]
